FAERS Safety Report 9922348 (Version 1)
Quarter: 2014Q1

REPORT INFORMATION
  Report Type: Spontaneous
  Country: US (occurrence: None)
  Receive Date: 20140224
  Receipt Date: 20140224
  Transmission Date: 20141002
  Serious: Yes (Other)
  Sender: FDA-Public Use
  Company Number: None

PATIENT
  Age: 37 Year
  Sex: Female
  Weight: 104.33 kg

DRUGS (3)
  1. PAXIL [Suspect]
     Indication: GENERALISED ANXIETY DISORDER
     Route: 048
  2. PAXIL [Suspect]
     Indication: SOCIAL PHOBIA
     Route: 048
  3. PAXIL [Suspect]
     Indication: DEPRESSION
     Route: 048

REACTIONS (7)
  - Drug withdrawal syndrome [None]
  - Dizziness [None]
  - Confusional state [None]
  - Lethargy [None]
  - Malaise [None]
  - Product substitution issue [None]
  - Product quality issue [None]
